FAERS Safety Report 10273508 (Version 1)
Quarter: 2014Q1

REPORT INFORMATION
  Report Type: Spontaneous
  Country: US (occurrence: None)
  Receive Date: 20140306
  Receipt Date: 20140306
  Transmission Date: 20141002
  Serious: Yes (Hospitalization, Other)
  Sender: FDA-Public Use
  Company Number: 163-21880-13082333

PATIENT
  Age: 79 Year
  Sex: Male
  Weight: 89.5 kg

DRUGS (15)
  1. REVLIMID [Suspect]
     Indication: PLASMA CELL MYELOMA
     Dosage: 25 MG, 21 IN 21 D, PO
     Route: 048
     Dates: start: 20130730
  2. TYLENOL [Concomitant]
  3. MAALOX [Concomitant]
  4. XANAX [Concomitant]
  5. LIPITOR [Concomitant]
  6. CEPHACOL [Concomitant]
  7. BENADRYL [Concomitant]
  8. REGLAN [Concomitant]
  9. LOPRESSOR [Concomitant]
  10. NITROGLYCERIN [Concomitant]
  11. ZOFRAN [Concomitant]
  12. OXYCONTIN [Concomitant]
  13. PANTOPRAZOLE [Concomitant]
  14. PIPERACILLIN [Concomitant]
  15. TAZOBACTAM [Concomitant]

REACTIONS (2)
  - Neutropenia [None]
  - Full blood count decreased [None]
